FAERS Safety Report 9818555 (Version 1)
Quarter: 2013Q4

REPORT INFORMATION
  Report Type: Spontaneous
  Country: US (occurrence: None)
  Receive Date: 20131223
  Receipt Date: 20131223
  Transmission Date: 20140711
  Serious: Yes (Other)
  Sender: FDA-Public Use
  Company Number: 218388

PATIENT
  Age: 61 Year
  Sex: Female

DRUGS (2)
  1. PICATO GEL [Suspect]
     Indication: ACTINIC KERATOSIS
     Route: 061
     Dates: start: 20120709, end: 20120710
  2. PICATO GEL [Suspect]
     Indication: POROKERATOSIS
     Route: 061
     Dates: start: 20120709, end: 20120710

REACTIONS (4)
  - Pruritus [None]
  - Prescribed overdose [None]
  - Drug administration error [None]
  - Off label use [None]
